FAERS Safety Report 7232444-7 (Version None)
Quarter: 2011Q1

REPORT INFORMATION
  Report Type: 
  Country: None (occurrence: None)
  Receive Date: 20110119
  Receipt Date: 20110110
  Transmission Date: 20110831
  Serious: Yes (Death, Other)
  Sender: FDA-Public Use
  Company Number: US-PFIZER INC-2010095841

PATIENT
  Sex: Female

DRUGS (1)
  1. CHANTIX [Suspect]
     Indication: SMOKING CESSATION THERAPY
     Dosage: UNK
     Dates: start: 20070711

REACTIONS (4)
  - IMPAIRED DRIVING ABILITY [None]
  - DIZZINESS [None]
  - COMPLETED SUICIDE [None]
  - MOOD SWINGS [None]
